FAERS Safety Report 5594789-6 (Version None)
Quarter: 2008Q1

REPORT INFORMATION
  Report Type: 
  Country: None (occurrence: None)
  Receive Date: 20080117
  Receipt Date: 20080114
  Transmission Date: 20080703
  Serious: Yes (Other)
  Sender: FDA-Public Use
  Company Number: A0703900A

PATIENT
  Sex: Female

DRUGS (1)
  1. WELLBUTRIN XL [Suspect]
     Indication: DRUG USE FOR UNKNOWN INDICATION
     Dosage: 399MG UNKNOWN
     Route: 048
     Dates: start: 20050101

REACTIONS (6)
  - ADVERSE EVENT [None]
  - NERVOUSNESS [None]
  - PROCEDURAL COMPLICATION [None]
  - PROCEDURAL DIZZINESS [None]
  - SYNCOPE [None]
  - TINNITUS [None]
